FAERS Safety Report 4530056-7 (Version None)
Quarter: 2004Q4

REPORT INFORMATION
  Report Type: 
  Country: None (occurrence: None)
  Receive Date: 20041215
  Receipt Date: 20041215
  Transmission Date: 20050328
  Serious: Yes (Life-Threatening, Hospitalization, Disabling)
  Sender: FDA-Public Use
  Company Number: None

PATIENT
  Sex: Male
  Weight: 81.6475 kg

DRUGS (3)
  1. AMIODARONE [Suspect]
     Indication: ARRHYTHMIA
     Dosage: 200 MG 2X/DAY
     Dates: start: 19970101, end: 20030927
  2. DIGOXIN [Concomitant]
  3. WARFARIN SODIUM [Concomitant]

REACTIONS (9)
  - ARRHYTHMIA [None]
  - CARDIAC FAILURE CONGESTIVE [None]
  - CYTOMEGALOVIRUS INFECTION [None]
  - HEART TRANSPLANT [None]
  - HYPERTHYROIDISM [None]
  - LIVER FUNCTION TEST ABNORMAL [None]
  - POOR PERIPHERAL CIRCULATION [None]
  - RENAL IMPAIRMENT [None]
  - VISUAL DISTURBANCE [None]
